FAERS Safety Report 17928480 (Version 1)
Quarter: 2020Q2

REPORT INFORMATION
  Report Type: Spontaneous
  Country: JP (occurrence: JP)
  Receive Date: 20200623
  Receipt Date: 20200623
  Transmission Date: 20200714
  Serious: Yes (Other)
  Sender: FDA-Public Use
  Company Number: NVSJ2020JP006027

PATIENT
  Age: 38 Year
  Sex: Female

DRUGS (1)
  1. CYCLOSPORINE. [Suspect]
     Active Substance: CYCLOSPORINE
     Indication: NAIL PSORIASIS
     Dosage: 2.0 MG/KG, FOR 6WEEKS
     Route: 048

REACTIONS (7)
  - Erythema [Unknown]
  - Psoriatic arthropathy [Unknown]
  - Skin exfoliation [Unknown]
  - Back pain [Unknown]
  - Arthralgia [Unknown]
  - Malaise [Unknown]
  - Drug ineffective [Unknown]
